FAERS Safety Report 8913032 (Version 1)
Quarter: 2012Q4

REPORT INFORMATION
  Report Type: Spontaneous
  Country: US (occurrence: None)
  Receive Date: 20121113
  Receipt Date: 20121113
  Transmission Date: 20130627
  Serious: Yes (Other)
  Sender: FDA-Public Use
  Company Number: 2012P1062822

PATIENT
  Age: 51 Year
  Sex: Male
  Weight: 90.72 kg

DRUGS (9)
  1. MYORISAN [Suspect]
     Indication: ACNE
     Route: 048
     Dates: start: 20120731, end: 20121015
  2. CYMBALTA [Concomitant]
  3. OMEPRAZOLE [Concomitant]
  4. ZOLPIDEM [Concomitant]
  5. TESTOSTERONE [Concomitant]
  6. PROVIGIL [Concomitant]
  7. OXCARBAZEPINE [Concomitant]
  8. CLONAZEPAM [Concomitant]
  9. BUPROPION [Concomitant]

REACTIONS (5)
  - Blood triglycerides increased [None]
  - Hyperlipidaemia [None]
  - Depression [None]
  - Mental disorder [None]
  - Condition aggravated [None]
